FAERS Safety Report 16976783 (Version 1)
Quarter: 2019Q4

REPORT INFORMATION
  Report Type: Report from Study
  Country: None (occurrence: US)
  Receive Date: 20191030
  Receipt Date: 20191030
  Transmission Date: 20200122
  Serious: Yes (Other)
  Sender: FDA-Public Use
  Company Number: US-ABBVIE-19K-163-2976787-00

PATIENT
  Sex: Male

DRUGS (1)
  1. HUMIRA [Suspect]
     Active Substance: ADALIMUMAB
     Indication: CROHN^S DISEASE
     Route: 058

REACTIONS (9)
  - Fatigue [Not Recovered/Not Resolved]
  - Adverse drug reaction [Unknown]
  - Tremor [Not Recovered/Not Resolved]
  - Haemorrhoidal haemorrhage [Not Recovered/Not Resolved]
  - Gastrointestinal disorder [Not Recovered/Not Resolved]
  - Metabolic disorder [Unknown]
  - Arthritis [Not Recovered/Not Resolved]
  - Pain [Unknown]
  - Neoplasm malignant [Not Recovered/Not Resolved]
